FAERS Safety Report 14097219 (Version 1)
Quarter: 2017Q4

REPORT INFORMATION
  Report Type: Spontaneous
  Country: US (occurrence: US)
  Receive Date: 20171017
  Receipt Date: 20171017
  Transmission Date: 20180321
  Serious: No
  Sender: FDA-Public Use
  Company Number: US-WEST-WARD PHARMACEUTICALS CORP.-US-H14001-16-02082

PATIENT
  Age: 61 Year
  Sex: Female

DRUGS (4)
  1. INFUMORPH [Suspect]
     Active Substance: MORPHINE SULFATE
     Indication: PAIN
  2. BUPIVACAINE. [Concomitant]
     Active Substance: BUPIVACAINE
     Indication: PAIN
  3. BUPIVACAINE. [Concomitant]
     Active Substance: BUPIVACAINE
     Indication: POST LAMINECTOMY SYNDROME
     Route: 037
  4. INFUMORPH [Suspect]
     Active Substance: MORPHINE SULFATE
     Indication: POST LAMINECTOMY SYNDROME
     Route: 037

REACTIONS (1)
  - Underdose [Recovered/Resolved]

NARRATIVE: CASE EVENT DATE: 20160924
